FAERS Safety Report 6026683-0 (Version None)
Quarter: 2008Q4

REPORT INFORMATION
  Report Type: 
  Country: None (occurrence: None)
  Receive Date: 20081231
  Receipt Date: 20081219
  Transmission Date: 20090506
  Serious: Yes (Hospitalization, Other)
  Sender: FDA-Public Use
  Company Number: GXKR2008US12168

PATIENT
  Age: 45 Year
  Sex: Female

DRUGS (10)
  1. PREDNISONE [Suspect]
     Indication: HEART TRANSPLANT
     Dosage: 8 MG, QD ; 6 MG, QD ; 5 MG, QD
  2. PREDNISONE [Suspect]
     Indication: RENAL TRANSPLANT
     Dosage: 8 MG, QD ; 6 MG, QD ; 5 MG, QD
  3. PREDNISONE [Suspect]
     Indication: HEART TRANSPLANT
     Dosage: 8 MG, QD ; 6 MG, QD ; 5 MG, QD
  4. PREDNISONE [Suspect]
     Indication: RENAL TRANSPLANT
     Dosage: 8 MG, QD ; 6 MG, QD ; 5 MG, QD
  5. CELLCEPT [Suspect]
     Indication: HEART TRANSPLANT
     Dosage: 250 MG, BID ; 500 MG, BID
  6. CELLCEPT [Suspect]
     Indication: RENAL TRANSPLANT
     Dosage: 250 MG, BID ; 500 MG, BID
  7. RAPAMYCIN (SIROLIMUS) [Suspect]
     Indication: RENAL TRANSPLANT
     Dosage: 4 MG, QD ; 2 MG, QD
  8. PROGRAF [Suspect]
     Indication: HEART TRANSPLANT
     Dosage: 2 MG, BID ; 3 MG AM AND 2 MG PM ; 2 MG AM AND 1 MG PM ; 1 MG AM AND 1.5 MG PM
  9. PROGRAF [Suspect]
     Indication: RENAL TRANSPLANT
     Dosage: 2 MG, BID ; 3 MG AM AND 2 MG PM ; 2 MG AM AND 1 MG PM ; 1 MG AM AND 1.5 MG PM
  10. .. [Concomitant]

REACTIONS (4)
  - ADENOSQUAMOUS CARCINOMA OF THE CERVIX [None]
  - DISEASE PROGRESSION [None]
  - NEOPLASM RECURRENCE [None]
  - SQUAMOUS CELL CARCINOMA OF THE CERVIX [None]
